FAERS Safety Report 4466766-X (Version None)
Quarter: 2004Q3

REPORT INFORMATION
  Report Type: 
  Country: None (occurrence: None)
  Receive Date: 20040930
  Receipt Date: 20040921
  Transmission Date: 20050211
  Serious: Yes (Other)
  Sender: FDA-Public Use
  Company Number: 2004227863US

PATIENT
  Age: 43 Year
  Sex: Female
  Weight: 86 kg

DRUGS (8)
  1. CELEBREX [Suspect]
     Indication: ARTHRALGIA
     Dosage: SEE IMAGE
     Route: 048
     Dates: start: 20040606, end: 20040713
  2. CELEBREX [Suspect]
     Indication: ARTHRALGIA
     Dosage: SEE IMAGE
     Route: 048
     Dates: start: 20040722, end: 20040810
  3. CELEBREX [Suspect]
     Indication: ARTHRALGIA
     Dosage: SEE IMAGE
     Route: 048
     Dates: start: 20040816
  4. INSULIN [Concomitant]
  5. LOPID [Concomitant]
  6. PLENDIL [Concomitant]
  7. PREVACID [Concomitant]
  8. TYLENOL [Concomitant]

REACTIONS (14)
  - ABDOMINAL PAIN UPPER [None]
  - ABNORMAL FAECES [None]
  - BACK PAIN [None]
  - DIARRHOEA [None]
  - DYSGEUSIA [None]
  - DYSPEPSIA [None]
  - ERUCTATION [None]
  - GASTROENTERITIS VIRAL [None]
  - GASTROINTESTINAL OEDEMA [None]
  - GASTROINTESTINAL PAIN [None]
  - HAEMATOCHEZIA [None]
  - LOSS OF CONSCIOUSNESS [None]
  - RENAL DISORDER [None]
  - STOMACH DISCOMFORT [None]
